FAERS Safety Report 11399394 (Version 1)
Quarter: 2015Q3

REPORT INFORMATION
  Report Type: Report from Study
  Country: US (occurrence: US)
  Receive Date: 20150820
  Receipt Date: 20150820
  Transmission Date: 20151125
  Serious: Yes (Other)
  Sender: FDA-Public Use
  Company Number: US-AMGEN-USASP2015084391

PATIENT
  Age: 60 Year
  Sex: Female

DRUGS (1)
  1. ENBREL [Suspect]
     Active Substance: ETANERCEPT
     Indication: PRODUCT USED FOR UNKNOWN INDICATION
     Dosage: UNK UNK, UNK
     Route: 065

REACTIONS (8)
  - Knee arthroplasty [Recovered/Resolved]
  - Surgery [Recovered/Resolved]
  - Hand deformity [Unknown]
  - Syndactyly [Unknown]
  - Rheumatoid arthritis [Unknown]
  - Hip arthroplasty [Recovered/Resolved]
  - Upper respiratory tract infection [Unknown]
  - Feeling abnormal [Unknown]
